FAERS Safety Report 9423854 (Version 1)
Quarter: 2013Q3

REPORT INFORMATION
  Report Type: Report from Study
  Country: US (occurrence: US)
  Receive Date: 20130729
  Receipt Date: 20130729
  Transmission Date: 20140515
  Serious: Yes (Other)
  Sender: FDA-Public Use
  Company Number: US-ROCHE-1253564

PATIENT
  Sex: Female

DRUGS (6)
  1. AVASTIN [Suspect]
     Indication: PRODUCT USED FOR UNKNOWN INDICATION
     Route: 042
  2. IBUPROFEN [Concomitant]
     Route: 065
  3. ZOFRAN [Concomitant]
     Route: 048
  4. DECADRON [Concomitant]
     Route: 048
  5. GEMZAR [Concomitant]
     Route: 065
  6. CARBOPLATIN [Concomitant]
     Route: 042

REACTIONS (4)
  - Neoplasm [Unknown]
  - Tumour pain [Recovering/Resolving]
  - Weight decreased [Unknown]
  - Snoring [Unknown]
